FAERS Safety Report 18151501 (Version 2)
Quarter: 2020Q3

REPORT INFORMATION
  Report Type: Report from Study
  Country: US (occurrence: US)
  Receive Date: 20200814
  Receipt Date: 20200828
  Transmission Date: 20201103
  Serious: Yes (Other)
  Sender: FDA-Public Use
  Company Number: US-JNJFOC-20200811497

PATIENT
  Age: 49 Year
  Sex: Female
  Weight: 69.92 kg

DRUGS (5)
  1. SPRAVATO [Suspect]
     Active Substance: ESKETAMINE
     Indication: DEPRESSION
     Dosage: 56 MG, TOTAL OF 5 DOSES
     Dates: start: 20200218, end: 20200303
  2. SPRAVATO [Suspect]
     Active Substance: ESKETAMINE
     Dosage: 84 MG, 18 TOTAL DOSES
     Dates: start: 20200331, end: 20200728
  3. SPRAVATO [Suspect]
     Active Substance: ESKETAMINE
     Dosage: 84 MG, 1 TOTAL DOSE
     Dates: start: 20200804, end: 20200804
  4. SPRAVATO [Suspect]
     Active Substance: ESKETAMINE
     Dosage: 84 MG, 3 TOTAL DOSES
     Dates: start: 20200310, end: 20200324
  5. SPRAVATO [Suspect]
     Active Substance: ESKETAMINE
     Dosage: 56 MG, 1 DOSE TOTAL
     Dates: start: 20200324, end: 20200324

REACTIONS (4)
  - Vomiting [Recovered/Resolved]
  - Sedation [Recovered/Resolved]
  - Nausea [Recovered/Resolved]
  - Dissociation [Recovered/Resolved]

NARRATIVE: CASE EVENT DATE: 20200804
